FAERS Safety Report 9277752 (Version 2)
Quarter: 2013Q2

REPORT INFORMATION
  Report Type: Report from Study
  Country: CA (occurrence: CA)
  Receive Date: 20130508
  Receipt Date: 20130513
  Transmission Date: 20140414
  Serious: Yes (Hospitalization)
  Sender: FDA-Public Use
  Company Number: CA-JNJFOC-20130500267

PATIENT
  Age: 31 Year
  Sex: Female

DRUGS (2)
  1. REMICADE [Suspect]
     Indication: COLITIS ULCERATIVE
     Dosage: INDUCTION 1ST INFUSION
     Route: 042
     Dates: start: 20130419
  2. REMICADE [Suspect]
     Indication: COLITIS ULCERATIVE
     Dosage: INDUCTION 2ND INFUSION
     Route: 042
     Dates: start: 20130503

REACTIONS (8)
  - Nausea [Not Recovered/Not Resolved]
  - Pyrexia [Not Recovered/Not Resolved]
  - Chills [Not Recovered/Not Resolved]
  - Diarrhoea [Not Recovered/Not Resolved]
  - Muscle spasms [Not Recovered/Not Resolved]
  - Pain [Not Recovered/Not Resolved]
  - Haemoglobin decreased [Unknown]
  - Venous thrombosis [Unknown]
